FAERS Safety Report 15969293 (Version 3)
Quarter: 2021Q4

REPORT INFORMATION
  Report Type: Spontaneous
  Country: US (occurrence: None)
  Receive Date: 20190215
  Receipt Date: 20211115
  Transmission Date: 20220303
  Serious: Yes (Death, Other)
  Sender: FDA-Public Use
  Company Number: 2018SF65453

PATIENT

DRUGS (17)
  1. NEXIUM [Suspect]
     Active Substance: ESOMEPRAZOLE MAGNESIUM
     Route: 048
     Dates: start: 20000401
  2. METOPROLOL TARTRATE [Concomitant]
     Active Substance: METOPROLOL TARTRATE
  3. LOVASTATIN [Concomitant]
     Active Substance: LOVASTATIN
  4. SLENOR [Concomitant]
  5. COLCRYS [Concomitant]
     Active Substance: COLCHICINE
  6. COLCHICINE [Concomitant]
     Active Substance: COLCHICINE
  7. CEPHALEXIN [Concomitant]
     Active Substance: CEPHALEXIN
  8. FUROSEMIDE [Concomitant]
     Active Substance: FUROSEMIDE
  9. DOXAZOSIN [Concomitant]
     Active Substance: DOXAZOSIN MESYLATE
  10. ISOSORBIDE [Concomitant]
     Active Substance: ISOSORBIDE
  11. NITROSTAT [Concomitant]
     Active Substance: NITROGLYCERIN
  12. GLIPIZIDE [Concomitant]
     Active Substance: GLIPIZIDE
  13. COLACE [Concomitant]
     Active Substance: DOCUSATE SODIUM
  14. HYDRALAZINE [Concomitant]
     Active Substance: HYDRALAZINE HYDROCHLORIDE
  15. LIPITOR [Concomitant]
     Active Substance: ATORVASTATIN CALCIUM
  16. NORVASC [Concomitant]
     Active Substance: AMLODIPINE BESYLATE
  17. PLAVIX [Concomitant]
     Active Substance: CLOPIDOGREL BISULFATE

REACTIONS (5)
  - Death [Fatal]
  - Chronic kidney disease [Unknown]
  - Renal failure [Unknown]
  - Renal injury [Unknown]
  - Rebound acid hypersecretion [Unknown]
